FAERS Safety Report 16359019 (Version 1)
Quarter: 2019Q2

REPORT INFORMATION
  Report Type: Spontaneous
  Country: US (occurrence: US)
  Receive Date: 20190527
  Receipt Date: 20190527
  Transmission Date: 20190711
  Serious: No
  Sender: FDA-Public Use
  Company Number: US-SA-2019SA137568

PATIENT
  Age: 39 Year
  Sex: Female

DRUGS (1)
  1. XYZAL ALLERGY 24HR [Suspect]
     Active Substance: LEVOCETIRIZINE DIHYDROCHLORIDE
     Indication: HYPERSENSITIVITY
     Dosage: 1 DF, 1X
     Route: 055
     Dates: start: 20190515, end: 20190516

REACTIONS (7)
  - Anxiety [Unknown]
  - Nasal congestion [Unknown]
  - Sneezing [Unknown]
  - Dyspnoea [Unknown]
  - Rhinorrhoea [Unknown]
  - Insomnia [Unknown]
  - Fatigue [Unknown]
